FAERS Safety Report 9782985 (Version 2)
Quarter: 2014Q1

REPORT INFORMATION
  Report Type: Spontaneous
  Country: CZ (occurrence: CZ)
  Receive Date: 20131226
  Receipt Date: 20140314
  Transmission Date: 20141002
  Serious: Yes (Hospitalization)
  Sender: FDA-Public Use
  Company Number: CZ-PFIZER INC-2013367346

PATIENT
  Age: 16 Year
  Sex: Male

DRUGS (2)
  1. ALPRAZOLAM [Suspect]
     Indication: SUICIDE ATTEMPT
     Dosage: UNK
  2. TRAMADOL HYDROCHLORIDE [Suspect]
     Indication: SUICIDE ATTEMPT
     Dosage: UNK

REACTIONS (2)
  - Intentional drug misuse [Unknown]
  - Toxicity to various agents [Unknown]
